FAERS Safety Report 14502284 (Version 1)
Quarter: 2018Q1

REPORT INFORMATION
  Report Type: Spontaneous
  Country: DK (occurrence: DK)
  Receive Date: 20180208
  Receipt Date: 20180208
  Transmission Date: 20180509
  Serious: Yes (Other)
  Sender: FDA-Public Use
  Company Number: DK-VISTAPHARM, INC.-VER201801-000279

PATIENT
  Age: 6 Year
  Sex: Male

DRUGS (1)
  1. PREDNISOLONE. [Suspect]
     Active Substance: PREDNISOLONE
     Indication: NEPHROTIC SYNDROME

REACTIONS (3)
  - Pneumothorax [Unknown]
  - Nocardiosis [Unknown]
  - Pulmonary cavitation [Unknown]
